FAERS Safety Report 6079116-2 (Version None)
Quarter: 2009Q1

REPORT INFORMATION
  Report Type: 
  Country: None (occurrence: None)
  Receive Date: 20090216
  Receipt Date: 20090206
  Transmission Date: 20090719
  Serious: Yes (Other)
  Sender: FDA-Public Use
  Company Number: A0735026A

PATIENT
  Sex: Male
  Weight: 79.5 kg

DRUGS (4)
  1. AVANDIA [Suspect]
     Dosage: 8MG PER DAY
     Route: 048
     Dates: start: 20020101, end: 20070501
  2. ACTOS [Concomitant]
     Dosage: 45MG PER DAY
     Dates: start: 20060101
  3. METFORMIN HCL [Concomitant]
     Dosage: 1000MG TWICE PER DAY
     Dates: start: 20000101
  4. DIABETA [Concomitant]
     Dosage: 2.5MG PER DAY
     Dates: start: 20060101

REACTIONS (4)
  - BLOOD CHOLESTEROL INCREASED [None]
  - BLOOD PRESSURE INCREASED [None]
  - FLUID RETENTION [None]
  - HEART INJURY [None]
